FAERS Safety Report 6096121-0 (Version None)
Quarter: 2009Q1

REPORT INFORMATION
  Report Type: 
  Country: None (occurrence: None)
  Receive Date: 20090227
  Receipt Date: 20080910
  Transmission Date: 20090719
  Serious: No
  Sender: FDA-Public Use
  Company Number: A0746329A

PATIENT
  Age: 51 Year
  Sex: Female

DRUGS (3)
  1. LAMICTAL [Suspect]
     Indication: BIPOLAR DISORDER
     Dosage: 300MG PER DAY
     Route: 048
     Dates: start: 20070901
  2. TRAZODONE HCL [Suspect]
     Dosage: 100MG PER DAY
     Dates: start: 19980101, end: 20071001
  3. PAXIL CR [Concomitant]

REACTIONS (10)
  - DRUG INTERACTION [None]
  - DYSGEUSIA [None]
  - DYSPHAGIA [None]
  - MALAISE [None]
  - MOOD ALTERED [None]
  - NAUSEA [None]
  - PYREXIA [None]
  - RETCHING [None]
  - SENSATION OF FOREIGN BODY [None]
  - SENSORY DISTURBANCE [None]
